FAERS Safety Report 6057798-9 (Version None)
Quarter: 2009Q1

REPORT INFORMATION
  Report Type: 
  Country: None (occurrence: None)
  Receive Date: 20090129
  Receipt Date: 20090128
  Transmission Date: 20090719
  Serious: Yes (Death, Other)
  Sender: FDA-Public Use
  Company Number: PHHY2009JP02415

PATIENT
  Age: 49 Year
  Sex: Male

DRUGS (6)
  1. CYCLOSPORINE [Suspect]
     Indication: CORD BLOOD TRANSPLANT THERAPY
     Dosage: UNK
     Dates: start: 20061101
  2. METHOTREXATE [Concomitant]
     Indication: GRAFT VERSUS HOST DISEASE
     Dosage: UNK
     Dates: start: 20061101
  3. NEUPOGEN [Concomitant]
  4. FLUDARABINE [Concomitant]
     Dosage: 150MG/M2
  5. MELPHALAN [Concomitant]
     Dosage: 100MG/M2
  6. IRRADIATION [Concomitant]
     Dosage: 4GY

REACTIONS (9)
  - ACUTE MYELOID LEUKAEMIA [None]
  - ANAEMIA [None]
  - BLAST CELLS PRESENT [None]
  - BRONCHOPULMONARY ASPERGILLOSIS [None]
  - CYTOGENETIC ABNORMALITY [None]
  - CYTOMEGALOVIRUS INFECTION [None]
  - CYTOMEGALOVIRUS VIRAEMIA [None]
  - HISTIOCYTOSIS HAEMATOPHAGIC [None]
  - MYELODYSPLASTIC SYNDROME [None]
